FAERS Safety Report 4459325-6 (Version None)
Quarter: 2004Q3

REPORT INFORMATION
  Report Type: 
  Country: None (occurrence: None)
  Receive Date: 20040927
  Receipt Date: 20040922
  Transmission Date: 20050211
  Serious: Yes (Hospitalization)
  Sender: FDA-Public Use
  Company Number: US-MERCK-0409USA01753

PATIENT
  Age: 75 Year
  Sex: Male

DRUGS (1)
  1. ZOCOR [Suspect]
     Route: 048

REACTIONS (4)
  - EXTREMITY NECROSIS [None]
  - MYOPATHY [None]
  - RENAL FAILURE [None]
  - RHABDOMYOLYSIS [None]
